FAERS Safety Report 23053579 (Version 2)
Quarter: 2024Q1

REPORT INFORMATION
  Report Type: Spontaneous
  Country: US (occurrence: US)
  Receive Date: 20231011
  Receipt Date: 20240214
  Transmission Date: 20240410
  Serious: Yes (Hospitalization, Other)
  Sender: FDA-Public Use
  Company Number: US-ASTELLAS-2023US029973

PATIENT
  Age: 62 Year
  Sex: Male

DRUGS (2)
  1. TACROLIMUS [Suspect]
     Active Substance: TACROLIMUS
     Indication: Lung transplant
     Dosage: UNK UNK, UNKNOWN FREQ.
     Route: 065
  2. PREDNISONE [Concomitant]
     Active Substance: PREDNISONE
     Indication: Lung transplant
     Dosage: UNK UNK, UNKNOWN FREQ. (LOW-DOSE)
     Route: 065

REACTIONS (5)
  - Toxicity to various agents [Recovered/Resolved]
  - Neurotoxicity [Recovered/Resolved]
  - Psychotic disorder [Recovered/Resolved]
  - Renal impairment [Recovered/Resolved]
  - Respiratory syncytial virus infection [Recovered/Resolved]
